FAERS Safety Report 8557208-3 (Version None)
Quarter: 2012Q3

REPORT INFORMATION
  Report Type: 
  Country: None (occurrence: None)
  Receive Date: 20120801
  Receipt Date: 20120726
  Transmission Date: 20120928
  Serious: Yes (Other)
  Sender: FDA-Public Use
  Company Number: PHHY2011IE69978

PATIENT
  Age: 57 Year
  Sex: Female

DRUGS (3)
  1. RASILEZ [Suspect]
     Indication: HYPERTENSION
     Dosage: 150 MG, UNK
     Route: 048
     Dates: start: 20110720, end: 20110723
  2. ASPIRIN [Concomitant]
  3. TENORMIN [Concomitant]
     Dosage: 50 MG, UNK
     Route: 048

REACTIONS (53)
  - VISION BLURRED [None]
  - BLOOD PRESSURE INCREASED [None]
  - TRANSIENT ISCHAEMIC ATTACK [None]
  - EYE INFECTION [None]
  - EYE PAIN [None]
  - LACRIMATION INCREASED [None]
  - LOCAL SWELLING [None]
  - LIMB DISCOMFORT [None]
  - DIARRHOEA [None]
  - MUSCLE ATROPHY [None]
  - PAIN [None]
  - SKIN DISORDER [None]
  - RASH [None]
  - SWELLING FACE [None]
  - HYPERKALAEMIA [None]
  - OROPHARYNGEAL PAIN [None]
  - EYELID OEDEMA [None]
  - ERYTHEMA [None]
  - MUMPS [None]
  - LYMPHADENOPATHY [None]
  - HYPERPARATHYROIDISM SECONDARY [None]
  - OEDEMA PERIPHERAL [None]
  - MUSCULOSKELETAL STIFFNESS [None]
  - PAIN IN EXTREMITY [None]
  - ODYNOPHAGIA [None]
  - ACIDOSIS [None]
  - YELLOW SKIN [None]
  - LUNG DISORDER [None]
  - TENSION HEADACHE [None]
  - TONGUE COATED [None]
  - VOMITING [None]
  - TRICHORRHEXIS [None]
  - RADIATION SICKNESS SYNDROME [None]
  - CATARACT [None]
  - HEPATIC CYST [None]
  - BURNING SENSATION [None]
  - ASTHENIA [None]
  - DERMATITIS [None]
  - PAIN OF SKIN [None]
  - BACK PAIN [None]
  - MEDIASTINAL DISORDER [None]
  - EYE SWELLING [None]
  - SKIN DISCOLOURATION [None]
  - ALOPECIA [None]
  - RENAL DISORDER [None]
  - LIP EXFOLIATION [None]
  - FLUID RETENTION [None]
  - TREMOR [None]
  - DYSPEPSIA [None]
  - ABDOMINAL DISCOMFORT [None]
  - CHEST PAIN [None]
  - ARTHRALGIA [None]
  - RADIATION INJURY [None]
